FAERS Safety Report 8313791-4 (Version None)
Quarter: 2012Q2

REPORT INFORMATION
  Report Type: 
  Country: None (occurrence: None)
  Receive Date: 20120426
  Receipt Date: 20120419
  Transmission Date: 20120825
  Serious: Yes (Hospitalization)
  Sender: FDA-Public Use
  Company Number: MX-BRISTOL-MYERS SQUIBB COMPANY-16263204

PATIENT
  Age: 69 Year
  Sex: Female
  Weight: 62 kg

DRUGS (4)
  1. FUROSEMIDE [Concomitant]
     Indication: FLUID RETENTION
     Route: 048
     Dates: start: 20070101
  2. SPIRONOLACTONE [Concomitant]
     Indication: FLUID RETENTION
     Dosage: 1 DF= 100MG TAB IN THAT 1/2 TAB PER 12 HOUR
     Route: 048
     Dates: start: 20070101
  3. IRBESARTAN AND HYDROCHLOROTHIAZIDE [Suspect]
     Indication: HYPERTENSION
     Route: 048
     Dates: start: 20080101
  4. PANTOPRAZOLE [Concomitant]
     Indication: GASTRITIS
     Route: 048
     Dates: start: 20080101

REACTIONS (11)
  - HIP FRACTURE [None]
  - CONVULSION [None]
  - NEUROPATHY PERIPHERAL [None]
  - FALL [None]
  - DEVICE DISLOCATION [None]
  - HAEMORRHOIDS [None]
  - CEREBROVASCULAR ACCIDENT [None]
  - HYPOKALAEMIA [None]
  - HYPERTENSION [None]
  - STUPOR [None]
  - DISORIENTATION [None]
